FAERS Safety Report 8168528-9 (Version None)
Quarter: 2012Q1

REPORT INFORMATION
  Report Type: 
  Country: None (occurrence: None)
  Receive Date: 20120227
  Receipt Date: 20120227
  Transmission Date: 20120608
  Serious: Yes (Life-Threatening)
  Sender: FDA-Public Use
  Company Number: None

PATIENT
  Sex: Female
  Weight: 54.431 kg

DRUGS (1)
  1. CYMBALTA [Suspect]
     Indication: DEPRESSION
     Dates: start: 20050901, end: 20120109

REACTIONS (8)
  - INSOMNIA [None]
  - NAUSEA [None]
  - MOOD SWINGS [None]
  - DRUG WITHDRAWAL SYNDROME [None]
  - PARAESTHESIA [None]
  - PAIN [None]
  - DEPRESSION [None]
  - IMPAIRED WORK ABILITY [None]
